FAERS Safety Report 10038996 (Version 3)
Quarter: 2014Q2

REPORT INFORMATION
  Report Type: Spontaneous
  Country: US (occurrence: US)
  Receive Date: 20140326
  Receipt Date: 20140617
  Transmission Date: 20141212
  Serious: Yes (Other)
  Sender: FDA-Public Use
  Company Number: US-GILEAD-2014-0097841

PATIENT
  Sex: Female

DRUGS (2)
  1. LETAIRIS [Suspect]
     Indication: PULMONARY ARTERIAL HYPERTENSION
     Dosage: 10 MG, QD
     Route: 065
     Dates: start: 201401
  2. RIOCIGUAT [Concomitant]

REACTIONS (3)
  - Oesophageal stenosis [Unknown]
  - Dysphagia [Unknown]
  - Oedema peripheral [Not Recovered/Not Resolved]
